FAERS Safety Report 18403518 (Version 1)
Quarter: 2020Q4

REPORT INFORMATION
  Report Type: Spontaneous
  Country: US (occurrence: US)
  Receive Date: 20201019
  Receipt Date: 20201019
  Transmission Date: 20210114
  Serious: Yes (Hospitalization)
  Sender: FDA-Public Use
  Company Number: None

PATIENT
  Age: 27 Year
  Sex: Male

DRUGS (7)
  1. VIMPAT 200MG [Concomitant]
  2. LAMOTRIGINE 150MG [Concomitant]
     Active Substance: LAMOTRIGINE
  3. ONFI [Concomitant]
     Active Substance: CLOBAZAM
  4. FAMOTIDINE 20MG [Concomitant]
     Active Substance: FAMOTIDINE
  5. BRIVIACT 100MG [Concomitant]
  6. EPIDIOLEX [Suspect]
     Active Substance: CANNABIDIOL
     Indication: SEIZURE
     Route: 048
     Dates: start: 20190901
  7. METOPROLOL TART 25MG [Concomitant]

REACTIONS (2)
  - Seizure [None]
  - Condition aggravated [None]

NARRATIVE: CASE EVENT DATE: 20201018
